FAERS Safety Report 16956010 (Version 5)
Quarter: 2021Q3

REPORT INFORMATION
  Report Type: Spontaneous
  Country: US (occurrence: US)
  Receive Date: 20191024
  Receipt Date: 20210810
  Transmission Date: 20211014
  Serious: No
  Sender: FDA-Public Use
  Company Number: US-PFIZER INC-2019459682

PATIENT
  Age: 49 Year
  Sex: Female

DRUGS (2)
  1. XELJANZ [Suspect]
     Active Substance: TOFACITINIB CITRATE
     Indication: RHEUMATOID ARTHRITIS
     Dosage: 5 MG, 2X/DAY [ONE TABLET TWICE DAILY ]
     Route: 048
     Dates: start: 201807
  2. XELJANZ [Suspect]
     Active Substance: TOFACITINIB CITRATE
     Dosage: 5 MG, 2X/DAY
     Route: 048
     Dates: start: 20190701

REACTIONS (11)
  - Headache [Recovered/Resolved]
  - Pain [Unknown]
  - Therapeutic product effect incomplete [Unknown]
  - Nasopharyngitis [Recovered/Resolved]
  - Depressed mood [Unknown]
  - Condition aggravated [Recovered/Resolved]
  - Arthralgia [Unknown]
  - Product dose omission in error [Unknown]
  - Discouragement [Unknown]
  - Therapeutic response unexpected [Unknown]
  - Bronchitis [Recovered/Resolved]

NARRATIVE: CASE EVENT DATE: 2019
